FAERS Safety Report 4962391-2 (Version None)
Quarter: 2006Q1

REPORT INFORMATION
  Report Type: 
  Country: None (occurrence: None)
  Receive Date: 20060329
  Receipt Date: 20060314
  Transmission Date: 20060701
  Serious: Yes (Other)
  Sender: FDA-Public Use
  Company Number: 2004S1002269

PATIENT
  Age: 26 Year
  Sex: Female
  Weight: 65.7716 kg

DRUGS (2)
  1. EXTENDED PHENYTOIN SODIUM [Suspect]
     Indication: GRAND MAL CONVULSION
     Dosage: 300 MG; HS; PO
     Route: 048
     Dates: start: 20040301, end: 20040716
  2. ALPRAZOLAM [Concomitant]

REACTIONS (7)
  - ANXIETY [None]
  - CONDITION AGGRAVATED [None]
  - CONVULSION [None]
  - DRUG LEVEL DECREASED [None]
  - IMPAIRED WORK ABILITY [None]
  - STRESS [None]
  - THERAPEUTIC RESPONSE UNEXPECTED WITH DRUG SUBSTITUTION [None]
